FAERS Safety Report 13779675 (Version 1)
Quarter: 2017Q3

REPORT INFORMATION
  Report Type: Spontaneous
  Country: US (occurrence: US)
  Receive Date: 20170722
  Receipt Date: 20170722
  Transmission Date: 20171127
  Serious: Yes (Other)
  Sender: FDA-Public Use
  Company Number: US-ROCHE-1967015

PATIENT
  Sex: Female
  Weight: 106.24 kg

DRUGS (1)
  1. ACTEMRA [Suspect]
     Active Substance: TOCILIZUMAB
     Indication: RHEUMATOID ARTHRITIS
     Route: 042
     Dates: start: 20170224

REACTIONS (2)
  - Cellulitis [Not Recovered/Not Resolved]
  - Ulcer [Not Recovered/Not Resolved]
